FAERS Safety Report 9494788 (Version 4)
Quarter: 2016Q1

REPORT INFORMATION
  Report Type: Spontaneous
  Country: US (occurrence: US)
  Receive Date: 20130903
  Receipt Date: 20160128
  Transmission Date: 20160526
  Serious: Yes (Hospitalization, Other)
  Sender: FDA-Public Use
  Company Number: US-PFIZER INC-2013251963

PATIENT
  Age: 82 Year
  Sex: Female
  Weight: 65.31 kg

DRUGS (28)
  1. LYRICA [Suspect]
     Active Substance: PREGABALIN
     Indication: NEUROPATHY PERIPHERAL
     Dosage: 75 MG, 2X/DAY
     Route: 048
     Dates: start: 2003
  2. LYRICA [Suspect]
     Active Substance: PREGABALIN
     Indication: NEUROLOGICAL SYMPTOM
     Dosage: 125 MG, 2X/DAY
     Route: 048
  3. SOMA [Concomitant]
     Active Substance: CARISOPRODOL
     Indication: SLEEP DISORDER
     Dosage: 350 MG, AS NEEDED
     Dates: start: 1908
  4. SOMA [Concomitant]
     Active Substance: CARISOPRODOL
     Indication: MUSCLE SPASMS
  5. DETROL LA [Suspect]
     Active Substance: TOLTERODINE TARTRATE
     Indication: URINARY TRACT DISORDER
     Dosage: 4 MG, 1X/DAY
     Route: 048
     Dates: start: 1914
  6. VITAMIN E [Concomitant]
     Active Substance: .ALPHA.-TOCOPHEROL
     Dosage: 1 A DAY
  7. NEXIUM [Concomitant]
     Active Substance: ESOMEPRAZOLE MAGNESIUM
     Indication: GASTROOESOPHAGEAL REFLUX DISEASE
     Dosage: 40 MG, 2X/DAY
  8. VITAMIN D [Concomitant]
     Active Substance: CHOLECALCIFEROL
     Dosage: 1 A DAY
  9. FISH OIL [Concomitant]
     Active Substance: FISH OIL
     Dosage: 1 MG, 1X/DAY
  10. NEXIUM [Concomitant]
     Active Substance: ESOMEPRAZOLE MAGNESIUM
     Dosage: 40 MG, 1X/DAY
     Dates: start: 1910
  11. LYRICA [Suspect]
     Active Substance: PREGABALIN
     Indication: PAIN IN EXTREMITY
     Dosage: 75 MG, 2X/DAY
  12. DETROL LA [Suspect]
     Active Substance: TOLTERODINE TARTRATE
     Indication: BLADDER DISORDER
     Dosage: 4 MG, 1X/DAY
     Route: 048
     Dates: start: 2010, end: 201308
  13. VITAMIN B12 [Concomitant]
     Active Substance: CYANOCOBALAMIN
     Dosage: 1 A DAY
  14. FERROUS SULFATE [Concomitant]
     Active Substance: FERROUS SULFATE\FERROUS SULFATE, DRIED
     Dosage: 1 DF, ALTERNATE DAY
     Route: 048
  15. SYNTHROID [Concomitant]
     Active Substance: LEVOTHYROXINE SODIUM
     Indication: HYPOTHYROIDISM
  16. VITAMIN D [Concomitant]
     Active Substance: CHOLECALCIFEROL
     Dosage: UNK, 2X/DAY
  17. AMPICILLIN [Concomitant]
     Active Substance: AMPICILLIN
     Dosage: 500 MG, UNK
  18. DETROL LA [Suspect]
     Active Substance: TOLTERODINE TARTRATE
     Indication: FLATULENCE
  19. CORTISONE [Concomitant]
     Active Substance: CORTISONE\HYDROCORTISONE
     Indication: BACK DISORDER
     Dosage: UNK
  20. ASPIRIN. [Concomitant]
     Active Substance: ASPIRIN
     Dosage: 81 MG, 1X/DAY
  21. SYNTHROID [Concomitant]
     Active Substance: LEVOTHYROXINE SODIUM
     Indication: THYROID DISORDER
     Dosage: 112 UG, 1X/DAY
     Dates: start: 1908
  22. NITROGLYCERIN. [Concomitant]
     Active Substance: NITROGLYCERIN
     Indication: CHEST PAIN
     Dosage: 0.4 MG, AS NEEDED
     Route: 060
     Dates: start: 20120912
  23. LYRICA [Suspect]
     Active Substance: PREGABALIN
     Indication: NEUROPATHY PERIPHERAL
  24. DETROL LA [Suspect]
     Active Substance: TOLTERODINE TARTRATE
     Indication: INCONTINENCE
  25. ICAPS [Concomitant]
     Active Substance: MINERALS\VITAMINS
     Indication: EYE DISORDER
     Dosage: UNK
  26. COLACE [Concomitant]
     Active Substance: DOCUSATE SODIUM
     Indication: FAECES HARD
     Dosage: UNK, 3X/DAY
  27. K-TAB [Concomitant]
     Active Substance: POTASSIUM CHLORIDE
     Dosage: 750 MG, 2X/DAY
  28. GLUCOSAMINE CHONDROITIN [Concomitant]
     Active Substance: CHONDROITIN SULFATE (BOVINE)\GLUCOSAMINE HYDROCHLORIDE
     Dosage: 3 STRENGTH 1 A DAY

REACTIONS (21)
  - Chest pain [Unknown]
  - Feeling hot [Unknown]
  - Iron deficiency [Unknown]
  - Myocardial infarction [Recovered/Resolved]
  - Condition aggravated [Recovered/Resolved]
  - Urosepsis [Unknown]
  - Neuropathy peripheral [Recovering/Resolving]
  - Anaemia [Recovered/Resolved]
  - Pain in extremity [Unknown]
  - Cerebrovascular accident [Recovered/Resolved]
  - Chills [Unknown]
  - Paraesthesia [Unknown]
  - Cystitis [Unknown]
  - Urinary incontinence [Not Recovered/Not Resolved]
  - Intentional product misuse [Unknown]
  - Rash [Not Recovered/Not Resolved]
  - Hyperpyrexia [Unknown]
  - Chest discomfort [Unknown]
  - Panic attack [Unknown]
  - Nephrolithiasis [Unknown]
  - Condition aggravated [Recovering/Resolving]

NARRATIVE: CASE EVENT DATE: 2011
